FAERS Safety Report 17105224 (Version 2)
Quarter: 2020Q2

REPORT INFORMATION
  Report Type: Spontaneous
  Country: US (occurrence: US)
  Receive Date: 20191203
  Receipt Date: 20200511
  Transmission Date: 20200713
  Serious: No
  Sender: FDA-Public Use
  Company Number: US-SA-2019SA333388

PATIENT
  Age: 20 Year
  Sex: Male

DRUGS (3)
  1. DUPIXENT [Suspect]
     Active Substance: DUPILUMAB
     Indication: DERMATITIS ATOPIC
     Dosage: 300 MG, QOW
     Route: 058
     Dates: start: 20190801
  2. BENZTROPINE [BENZATROPINE] [Suspect]
     Active Substance: BENZTROPINE
     Dosage: UNK UNK, QD
     Dates: start: 202004
  3. BENZTROPINE [BENZATROPINE] [Suspect]
     Active Substance: BENZTROPINE
     Dosage: 3 DF, QD
     Dates: start: 202004

REACTIONS (2)
  - Rash [Unknown]
  - Eye pruritus [Unknown]

NARRATIVE: CASE EVENT DATE: 2019
